FAERS Safety Report 12118769 (Version 1)
Quarter: 2016Q1

REPORT INFORMATION
  Report Type: Report from Study
  Country: US (occurrence: US)
  Receive Date: 20160226
  Receipt Date: 20160226
  Transmission Date: 20160526
  Serious: No
  Sender: FDA-Public Use
  Company Number: US-AMGEN-USASL2016021590

PATIENT
  Age: 63 Year
  Sex: Female

DRUGS (1)
  1. ENBREL [Suspect]
     Active Substance: ETANERCEPT
     Indication: RHEUMATOID ARTHRITIS
     Dosage: UNK
     Route: 065
     Dates: start: 201508

REACTIONS (11)
  - Pain [Unknown]
  - Injection site dryness [Unknown]
  - Upper respiratory tract infection [Unknown]
  - Injection site discolouration [Unknown]
  - Cough [Unknown]
  - Injection site swelling [Unknown]
  - Injection site pruritus [Unknown]
  - Rhinorrhoea [Unknown]
  - Injection site reaction [Unknown]
  - Nasopharyngitis [Unknown]
  - Bronchitis [Unknown]

NARRATIVE: CASE EVENT DATE: 201601
